FAERS Safety Report 24715672 (Version 1)
Quarter: 2024Q4

REPORT INFORMATION
  Report Type: Spontaneous
  Country: AT (occurrence: AT)
  Receive Date: 20241210
  Receipt Date: 20241210
  Transmission Date: 20250115
  Serious: Yes (Death)
  Sender: PAREXEL
  Company Number: AT-STEMLINE THERAPEUTICS B.V.-2024-STML-AT006532

PATIENT

DRUGS (2)
  1. ORSERDU [Suspect]
     Active Substance: ELACESTRANT
     Indication: Product used for unknown indication
     Dosage: 345 MG, DAILY (DAY 1 TO DAY 30 OF A 30 DAY CYCLE)
     Route: 065
     Dates: start: 20240705
  2. ORSERDU [Suspect]
     Active Substance: ELACESTRANT
     Dosage: 3 DOSAGE FORM, DAILY
     Route: 065

REACTIONS (1)
  - General physical health deterioration [Fatal]
